FAERS Safety Report 25028945 (Version 3)
Quarter: 2025Q3

REPORT INFORMATION
  Report Type: Spontaneous
  Country: EU (occurrence: EU)
  Receive Date: 20250302
  Receipt Date: 20250815
  Transmission Date: 20251021
  Serious: Yes (Hospitalization, Other)
  Sender: GLAXOSMITHKLINE
  Company Number: None

PATIENT
  Age: 59 Year
  Sex: Male
  Weight: 67 kg

DRUGS (12)
  1. ATOVAQUONE [Suspect]
     Active Substance: ATOVAQUONE
     Indication: Pneumocystis jirovecii pneumonia
     Dosage: 1500 MG, QD (750 MG/5 ML)
  2. BACTRIM [Suspect]
     Active Substance: SULFAMETHOXAZOLE\TRIMETHOPRIM
     Indication: Pneumocystis jirovecii pneumonia
     Dosage: 6 DF, QD
  3. LANSOPRAZOLE [Suspect]
     Active Substance: LANSOPRAZOLE
     Indication: Product used for unknown indication
     Dosage: 30 MG, QD
  4. LANSOPRAZOLE [Suspect]
     Active Substance: LANSOPRAZOLE
     Dosage: 15 MG, QD
  5. PANTOPRAZOLE [Suspect]
     Active Substance: PANTOPRAZOLE
     Indication: Product used for unknown indication
     Dosage: 40 MG, QD
  6. METHYLPREDNISOLONE [Suspect]
     Active Substance: METHYLPREDNISOLONE
     Indication: Haemophagocytic lymphohistiocytosis
     Dosage: 67 MG, QD
  7. OMNIPAQUE [Suspect]
     Active Substance: IOHEXOL
     Indication: Positron emission tomogram
  8. PIPERACILLIN SODIUM\TAZOBACTAM SODIUM [Suspect]
     Active Substance: PIPERACILLIN SODIUM\TAZOBACTAM SODIUM
     Indication: Febrile bone marrow aplasia
     Dosage: 12 G, QD
  9. VANCOMYCIN [Suspect]
     Active Substance: VANCOMYCIN
     Indication: Febrile bone marrow aplasia
  10. FLUCONAZOLE [Concomitant]
     Active Substance: FLUCONAZOLE
     Indication: Product used for unknown indication
     Dosage: 200 DF, QD
  11. MORPHINE SULFATE [Concomitant]
     Active Substance: MORPHINE SULFATE
     Indication: Product used for unknown indication
  12. IOBITRIDOL [Concomitant]
     Active Substance: IOBITRIDOL
     Indication: Product used for unknown indication

REACTIONS (1)
  - Drug reaction with eosinophilia and systemic symptoms [Recovered/Resolved]

NARRATIVE: CASE EVENT DATE: 20250116
